FAERS Safety Report 5069763-9 (Version None)
Quarter: 2006Q3

REPORT INFORMATION
  Report Type: 
  Country: None (occurrence: None)
  Receive Date: 20060803
  Receipt Date: 20060512
  Transmission Date: 20061208
  Serious: Yes (Other)
  Sender: FDA-Public Use
  Company Number: US-GLAXOSMITHKLINE-A0605590A

PATIENT
  Sex: Male

DRUGS (5)
  1. WELLBUTRIN XL [Suspect]
     Indication: DRUG USE FOR UNKNOWN INDICATION
     Dosage: 300MG PER DAY
     Route: 065
  2. CELEBREX [Concomitant]
  3. FLEXERIL [Concomitant]
  4. MORPHINE [Concomitant]
  5. NEXIUM [Concomitant]

REACTIONS (5)
  - AGGRESSION [None]
  - AGITATION [None]
  - BACK PAIN [None]
  - DISSOCIATION [None]
  - MOOD ALTERED [None]
